FAERS Safety Report 20128018 (Version 1)
Quarter: 2021Q4

REPORT INFORMATION
  Report Type: Other
  Country: US (occurrence: None)
  Receive Date: 20211129
  Receipt Date: 20211129
  Transmission Date: 20220304
  Serious: Yes (Other)
  Sender: FDA-Public Use
  Company Number: US-ROCHE-2722019

PATIENT
  Age: 63 Year
  Sex: Female

DRUGS (3)
  1. TRASTUZUMAB [Suspect]
     Active Substance: TRASTUZUMAB
     Indication: HER2 positive breast cancer
     Route: 065
  2. DOCETAXEL [Suspect]
     Active Substance: DOCETAXEL
     Indication: HER2 positive breast cancer
     Route: 065
  3. CARBOPLATIN [Suspect]
     Active Substance: CARBOPLATIN
     Indication: HER2 positive breast cancer
     Dosage: AREA UNDER CURVE, 6 MG/ML/MIN
     Route: 065

REACTIONS (4)
  - Ejection fraction decreased [Recovered/Resolved]
  - Odynophagia [Recovered/Resolved]
  - Cough [Recovered/Resolved]
  - Erythema [Recovered/Resolved]
